FAERS Safety Report 7932968-0 (Version None)
Quarter: 2011Q4

REPORT INFORMATION
  Report Type: 
  Country: None (occurrence: None)
  Receive Date: 20111122
  Receipt Date: 20111115
  Transmission Date: 20120403
  Serious: Yes (Other)
  Sender: FDA-Public Use
  Company Number: PHEH2011US009651

PATIENT
  Sex: Male
  Weight: 92.5 kg

DRUGS (1)
  1. ZOMETA [Suspect]
     Indication: BONE DISORDER
     Dosage: 4 MG ONCE
     Route: 042
     Dates: start: 20110718, end: 20110718

REACTIONS (4)
  - EXPOSED BONE IN JAW [None]
  - TONGUE INJURY [None]
  - GLOSSODYNIA [None]
  - OSTEONECROSIS OF JAW [None]
